FAERS Safety Report 21974067 (Version 1)
Quarter: 2023Q1

REPORT INFORMATION
  Report Type: Spontaneous
  Country: US (occurrence: US)
  Receive Date: 20230209
  Receipt Date: 20230209
  Transmission Date: 20230418
  Serious: Yes (Hospitalization, Other)
  Sender: FDA-Public Use
  Company Number: US-BRISTOL-MYERS SQUIBB COMPANY-2023-017748

PATIENT
  Age: 58 Year
  Sex: Male

DRUGS (3)
  1. ELIQUIS [Suspect]
     Active Substance: APIXABAN
     Indication: Product used for unknown indication
  2. CABOMETYX [Suspect]
     Active Substance: CABOZANTINIB S-MALATE
     Indication: Renal cancer
     Route: 048
     Dates: start: 20210310
  3. CABOMETYX [Suspect]
     Active Substance: CABOZANTINIB S-MALATE
     Route: 048
     Dates: start: 20210401

REACTIONS (10)
  - Blood urine present [Unknown]
  - Night blindness [Unknown]
  - Insomnia [Unknown]
  - Blood magnesium decreased [Unknown]
  - Thrombosis [Unknown]
  - Diarrhoea [Unknown]
  - Muscular weakness [Unknown]
  - Muscle spasms [Unknown]
  - Epistaxis [Unknown]
  - Oral neoplasm benign [Unknown]

NARRATIVE: CASE EVENT DATE: 20220801
